FAERS Safety Report 4878221-3 (Version None)
Quarter: 2006Q1

REPORT INFORMATION
  Report Type: 
  Country: None (occurrence: None)
  Receive Date: 20060111
  Receipt Date: 20050823
  Transmission Date: 20060701
  Serious: Yes (Hospitalization)
  Sender: FDA-Public Use
  Company Number: US-MERCK-0508USA03894

PATIENT
  Age: 62 Year
  Sex: Female
  Weight: 61 kg

DRUGS (5)
  1. VIOXX [Suspect]
     Indication: OSTEOARTHRITIS
     Route: 048
     Dates: start: 19990803, end: 20040913
  2. IMURAN [Concomitant]
     Route: 065
  3. PREDNISONE [Concomitant]
     Route: 065
  4. FOSAMAX [Concomitant]
     Route: 065
  5. LIPITOR [Concomitant]
     Route: 065

REACTIONS (21)
  - ABDOMINAL BRUIT [None]
  - ANGINA PECTORIS [None]
  - ARTHRITIS [None]
  - ARTHROPATHY [None]
  - BRADYCARDIA [None]
  - CHEST PAIN [None]
  - CORONARY ARTERY DISEASE [None]
  - HYPERHOMOCYSTEINAEMIA [None]
  - HYPERTENSION [None]
  - INFLUENZA [None]
  - LACERATION [None]
  - LUNG DISORDER [None]
  - MENISCUS LESION [None]
  - MYOCARDIAL INFARCTION [None]
  - OVERDOSE [None]
  - PELVIC FRACTURE [None]
  - PERIPHERAL VASCULAR DISORDER [None]
  - RENAL FAILURE CHRONIC [None]
  - SINUS DISORDER [None]
  - TOE DEFORMITY [None]
  - VENTRICULAR HYPOKINESIA [None]
